FAERS Safety Report 9988284 (Version 2)
Quarter: 2014Q1

REPORT INFORMATION
  Report Type: Spontaneous
  Country: US (occurrence: US)
  Receive Date: 20140310
  Receipt Date: 20140310
  Transmission Date: 20141002
  Serious: Yes (Other)
  Sender: FDA-Public Use
  Company Number: US-ROCHE-1317028

PATIENT
  Sex: Male

DRUGS (2)
  1. PEGASYS [Suspect]
     Indication: POLYCYTHAEMIA VERA
     Route: 058
     Dates: start: 201306
  2. PEGASYS [Suspect]
     Route: 058

REACTIONS (8)
  - Skin reaction [Not Recovered/Not Resolved]
  - Xerosis [Not Recovered/Not Resolved]
  - Urticaria [Not Recovered/Not Resolved]
  - Rash [Unknown]
  - Incorrect dose administered [Unknown]
  - Rash [Unknown]
  - Dry mouth [Unknown]
  - Pruritus [Unknown]
